FAERS Safety Report 11515275 (Version 4)
Quarter: 2015Q4

REPORT INFORMATION
  Report Type: Report from Study
  Country: TW (occurrence: TW)
  Receive Date: 20150916
  Receipt Date: 20151109
  Transmission Date: 20160304
  Serious: Yes (Hospitalization, Other)
  Sender: FDA-Public Use
  Company Number: TW-INCYTE CORPORATION-2015IN004530

PATIENT
  Age: 69 Year
  Sex: Female
  Weight: 48 kg

DRUGS (13)
  1. ACETAMINOPHEN. [Concomitant]
     Active Substance: ACETAMINOPHEN
     Indication: PRODUCT USED FOR UNKNOWN INDICATION
     Dosage: UNK
     Route: 065
     Dates: start: 20150830, end: 20150917
  2. PIPERACILLIN AND TAZOBACTAM [Concomitant]
     Active Substance: PIPERACILLIN SODIUM\TAZOBACTAM SODIUM
     Indication: PRODUCT USED FOR UNKNOWN INDICATION
     Dosage: UNK
     Route: 065
  3. CEFTRIAXONE. [Concomitant]
     Active Substance: CEFTRIAXONE
     Indication: PRODUCT USED FOR UNKNOWN INDICATION
     Dosage: 2 G, QD
     Route: 042
     Dates: start: 20150830, end: 20150831
  4. EXJADE [Suspect]
     Active Substance: DEFERASIROX
     Indication: PRODUCT USED FOR UNKNOWN INDICATION
     Dosage: UNKNOWN
     Route: 065
     Dates: start: 20130719
  5. ACETAMINOPHEN. [Concomitant]
     Active Substance: ACETAMINOPHEN
     Dosage: 500 MG, QID
     Route: 048
     Dates: start: 20150830, end: 20150917
  6. CEFAZOLIN SODIUM. [Concomitant]
     Active Substance: CEFAZOLIN SODIUM
     Indication: PRODUCT USED FOR UNKNOWN INDICATION
     Dosage: 500 MG, Q8H
     Route: 042
     Dates: start: 20150918, end: 20151023
  7. JAKAFI [Suspect]
     Active Substance: RUXOLITINIB
     Indication: MYELOFIBROSIS
     Dosage: 15 MG, QD
     Route: 048
     Dates: start: 20111101
  8. AMINO ACID [Concomitant]
     Indication: PRODUCT USED FOR UNKNOWN INDICATION
     Dosage: UNK
     Route: 065
     Dates: start: 20150831, end: 20151023
  9. AMINO ACID [Concomitant]
     Dosage: 500 ML/BOT, QD
     Route: 042
     Dates: start: 20150831, end: 20151023
  10. PIPERACILLIN [Concomitant]
     Active Substance: PIPERACILLIN
     Indication: PRODUCT USED FOR UNKNOWN INDICATION
     Dosage: 4 G, QD
     Route: 042
     Dates: start: 20150831, end: 20150902
  11. VANCOMYCIN HCL [Concomitant]
     Active Substance: VANCOMYCIN HYDROCHLORIDE
     Indication: PRODUCT USED FOR UNKNOWN INDICATION
     Dosage: 1 G, QD
     Route: 042
     Dates: start: 20150902, end: 20150902
  12. JAKAFI [Suspect]
     Active Substance: RUXOLITINIB
     Dosage: 20 MG, BID
     Route: 048
  13. PIPERACILLIN AND TAZOBACTAM [Concomitant]
     Active Substance: PIPERACILLIN SODIUM\TAZOBACTAM SODIUM
     Dosage: UNK UNK, QD

REACTIONS (39)
  - Pulmonary fibrosis [Unknown]
  - Pseudomembranous colitis [Unknown]
  - Aortic calcification [Unknown]
  - Abdominal pain [Unknown]
  - Diarrhoea [Unknown]
  - Splenomegaly [Unknown]
  - Meningitis cryptococcal [Recovering/Resolving]
  - Red blood cell count increased [Unknown]
  - Promyelocyte count increased [Unknown]
  - Lymphocyte count decreased [Unknown]
  - Blood glucose increased [Unknown]
  - Arteriosclerosis coronary artery [Unknown]
  - Lung infiltration [Unknown]
  - Haemochromatosis [Unknown]
  - Platelet count decreased [Unknown]
  - Haematochezia [Unknown]
  - Pneumonia [Unknown]
  - Myelocyte count increased [Unknown]
  - Metamyelocyte count increased [Unknown]
  - Band neutrophil count increased [Unknown]
  - Red blood cell count decreased [Unknown]
  - Lymphocyte count increased [Unknown]
  - Ascites [Unknown]
  - Atelectasis [Unknown]
  - Lung consolidation [Unknown]
  - Cough [Unknown]
  - Haematocrit decreased [Unknown]
  - Red cell distribution width increased [Unknown]
  - Cardiomegaly [Unknown]
  - Blood pressure systolic increased [Unknown]
  - Altered state of consciousness [Unknown]
  - Basophil count increased [Unknown]
  - Gastrointestinal wall thickening [Unknown]
  - Clostridium difficile infection [Unknown]
  - Scoliosis [Unknown]
  - Diaphragmatic disorder [Unknown]
  - Pleural effusion [Unknown]
  - Hypokalaemia [Unknown]
  - Haemoglobin decreased [Unknown]

NARRATIVE: CASE EVENT DATE: 20111101
